FAERS Safety Report 9397416 (Version 1)
Quarter: 2013Q3

REPORT INFORMATION
  Report Type: Spontaneous
  Country: ES (occurrence: ES)
  Receive Date: 20130712
  Receipt Date: 20130712
  Transmission Date: 20140515
  Serious: Yes (Other)
  Sender: FDA-Public Use
  Company Number: ES-VERTEX PHARMACEUTICALS INC-2013-007877

PATIENT
  Sex: Female

DRUGS (3)
  1. INCIVO [Suspect]
     Indication: HEPATITIS C
     Dosage: UNK
  2. RIBAVIRINE [Suspect]
     Indication: HEPATITIS C
     Dosage: UNK
  3. INTERFERON [Suspect]
     Indication: HEPATITIS C
     Dosage: UNK, TABLET

REACTIONS (3)
  - Skin reaction [Unknown]
  - Pyrexia [Unknown]
  - Oedema [Unknown]
